FAERS Safety Report 14675631 (Version 2)
Quarter: 2019Q1

REPORT INFORMATION
  Report Type: Spontaneous
  Country: CA (occurrence: CA)
  Receive Date: 20180323
  Receipt Date: 20190213
  Transmission Date: 20190417
  Serious: Yes (Hospitalization, Other)
  Sender: FDA-Public Use
  Company Number: CA-PFIZER INC-2018118105

PATIENT
  Age: 61 Year
  Sex: Male
  Weight: 97 kg

DRUGS (3)
  1. IBUPROFEN. [Suspect]
     Active Substance: IBUPROFEN
     Indication: OSTEOARTHRITIS
     Dosage: UNK, 3X/DAY
     Route: 048
  2. ESOMEPRAZOLE MAGNESIUM. [Suspect]
     Active Substance: ESOMEPRAZOLE MAGNESIUM
     Indication: PROPHYLAXIS AGAINST GASTROINTESTINAL ULCER
     Dosage: 40 MG, 1X/DAY
     Route: 048
  3. ASA [Concomitant]
     Active Substance: ASPIRIN
     Route: 048

REACTIONS (1)
  - Polyarthritis [Recovered/Resolved]
